FAERS Safety Report 12364519 (Version 1)
Quarter: 2016Q2

REPORT INFORMATION
  Report Type: Spontaneous
  Country: US (occurrence: None)
  Receive Date: 20160512
  Receipt Date: 20160512
  Transmission Date: 20160815
  Serious: Yes (Disabling, Other)
  Sender: FDA-Public Use
  Company Number: None

PATIENT
  Age: 47 Year
  Sex: Male
  Weight: 81.65 kg

DRUGS (8)
  1. 300 METHADONE 10MG TAB, 10 MG [Suspect]
     Active Substance: METHADONE HYDROCHLORIDE
     Indication: PAIN IN EXTREMITY
     Route: 048
  2. LASIX [Concomitant]
     Active Substance: FUROSEMIDE
  3. EXCEDRIN [Concomitant]
     Active Substance: ACETAMINOPHEN\ASPIRIN\CAFFEINE
  4. 300 METHADONE 10MG TAB, 10 MG [Suspect]
     Active Substance: METHADONE HYDROCHLORIDE
     Indication: PAIN
     Route: 048
  5. LIPITOR [Concomitant]
     Active Substance: ATORVASTATIN CALCIUM
  6. XARELTO [Concomitant]
     Active Substance: RIVAROXABAN
  7. XANAX [Concomitant]
     Active Substance: ALPRAZOLAM
  8. POTASSIUM [Concomitant]
     Active Substance: POTASSIUM

REACTIONS (6)
  - Gait disturbance [None]
  - Activities of daily living impaired [None]
  - Reaction to drug excipients [None]
  - Drug ineffective [None]
  - Product substitution issue [None]
  - Dysstasia [None]

NARRATIVE: CASE EVENT DATE: 20160420
